FAERS Safety Report 24580239 (Version 3)
Quarter: 2025Q3

REPORT INFORMATION
  Report Type: Report from Study
  Country: BR (occurrence: BR)
  Receive Date: 20241105
  Receipt Date: 20250809
  Transmission Date: 20251020
  Serious: Yes (Other)
  Sender: ALEXION PHARMACEUTICALS
  Company Number: BR-AstraZeneca-CH-00717398A

PATIENT
  Sex: Male

DRUGS (2)
  1. TEZEPELUMAB [Suspect]
     Active Substance: TEZEPELUMAB
     Indication: Asthma
  2. TEZEPELUMAB [Suspect]
     Active Substance: TEZEPELUMAB

REACTIONS (7)
  - Respiratory arrest [Unknown]
  - Dyspnoea [Unknown]
  - Headache [Unknown]
  - Cough [Unknown]
  - Influenza [Unknown]
  - Nasal congestion [Unknown]
  - Inappropriate schedule of product administration [Unknown]

NARRATIVE: CASE EVENT DATE: 20240925
